FAERS Safety Report 4825044-7 (Version None)
Quarter: 2005Q4

REPORT INFORMATION
  Report Type: 
  Country: None (occurrence: None)
  Receive Date: 20051109
  Receipt Date: 20051109
  Transmission Date: 20060501
  Serious: Yes (Other)
  Sender: FDA-Public Use
  Company Number: None

PATIENT
  Sex: Male
  Weight: 72.5755 kg

DRUGS (1)
  1. AMOXICILLIN [Suspect]
     Indication: INFECTION
     Dosage: 500 MG 3 TIMES / DAY
     Dates: start: 20051101, end: 20051104

REACTIONS (2)
  - DIARRHOEA [None]
  - STOMACH DISCOMFORT [None]
